FAERS Safety Report 4709976-6 (Version None)
Quarter: 2005Q3

REPORT INFORMATION
  Report Type: 
  Country: None (occurrence: None)
  Receive Date: 20050707
  Receipt Date: 20050621
  Transmission Date: 20060218
  Serious: Yes (Other)
  Sender: FDA-Public Use
  Company Number: 2005BL003858

PATIENT
  Age: 58 Year
  Sex: Male

DRUGS (1)
  1. ALREX [Suspect]
     Indication: HERPES SIMPLEX
     Dosage: 1 DROP; 4 TIMES A DAY; RIGHT EYE
     Dates: start: 20030720, end: 20030831

REACTIONS (3)
  - BLINDNESS TRANSIENT [None]
  - CORNEAL DISORDER [None]
  - INTRAOCULAR PRESSURE INCREASED [None]
